FAERS Safety Report 7199603-3 (Version None)
Quarter: 2010Q4

REPORT INFORMATION
  Report Type: 
  Country: None (occurrence: None)
  Receive Date: 20101228
  Receipt Date: 20101223
  Transmission Date: 20110411
  Serious: Yes (Hospitalization, Other)
  Sender: FDA-Public Use
  Company Number: JP-BRACCO-004377

PATIENT
  Age: 69 Year
  Sex: Male

DRUGS (2)
  1. IOPAMIDOL [Suspect]
     Indication: SCAN BRAIN
     Route: 042
  2. IOPAMIDOL [Suspect]
     Indication: ANEURYSM REPAIR
     Route: 042

REACTIONS (1)
  - CENTRAL NERVOUS SYSTEM LESION [None]
